FAERS Safety Report 4273652-7 (Version None)
Quarter: 2004Q1

REPORT INFORMATION
  Report Type: 
  Country: None (occurrence: None)
  Receive Date: 20040116
  Receipt Date: 20040116
  Transmission Date: 20041129
  Serious: Yes (Death)
  Sender: FDA-Public Use
  Company Number: None

PATIENT
  Age: 75 Year
  Sex: Male
  Weight: 80 kg

DRUGS (1)
  1. ALTEPLASE 1MG/ML GENENTECH [Suspect]
     Indication: ISCHAEMIC STROKE
     Dosage: ONE HOUR INTRAVENOUS
     Route: 042
     Dates: start: 20031112, end: 20031112

REACTIONS (6)
  - BRONCHIAL OBSTRUCTION [None]
  - ENCEPHALOPATHY [None]
  - EPILEPSY [None]
  - PNEUMONIA [None]
  - RESPIRATORY FAILURE [None]
  - SOMNOLENCE [None]
